FAERS Safety Report 6788520-6 (Version None)
Quarter: 2010Q2

REPORT INFORMATION
  Report Type: 
  Country: None (occurrence: None)
  Receive Date: 20100621
  Receipt Date: 20100609
  Transmission Date: 20101027
  Serious: Yes (Hospitalization)
  Sender: FDA-Public Use
  Company Number: 231645J10USA

PATIENT
  Age: 57 Year
  Sex: Female
  Weight: 94 kg

DRUGS (6)
  1. REBIF [Suspect]
     Indication: MULTIPLE SCLEROSIS
     Dosage: 44 MCG, 3 IN 1 WK, SUBCUTANEOUS
     Route: 058
     Dates: start: 20031122, end: 20100121
  2. REBIF [Suspect]
     Indication: MULTIPLE SCLEROSIS
     Dosage: 44 MCG, 3 IN 1 WK, SUBCUTANEOUS
     Route: 058
     Dates: start: 20100419
  3. AMANTADINE HCL [Suspect]
     Indication: FATIGUE
     Dates: end: 20100130
  4. AMANTADINE HCL [Suspect]
     Indication: FATIGUE
     Dates: start: 20100101, end: 20100601
  5. UNSPECIFIED BLOOD PRESSURE MEDICATION (ANTIHYPERTENSIVES) [Concomitant]
  6. NORVASC [Concomitant]

REACTIONS (17)
  - ATRIAL FIBRILLATION [None]
  - BLADDER CYST [None]
  - DEPRESSION [None]
  - DRUG INEFFECTIVE [None]
  - DYSPEPSIA [None]
  - EPISTAXIS [None]
  - FATIGUE [None]
  - FEELING COLD [None]
  - HEADACHE [None]
  - INTERNATIONAL NORMALISED RATIO DECREASED [None]
  - MULTIPLE SCLEROSIS RELAPSE [None]
  - OEDEMA PERIPHERAL [None]
  - PAIN IN EXTREMITY [None]
  - POLLAKIURIA [None]
  - PULMONARY THROMBOSIS [None]
  - THROMBOSIS [None]
  - URINARY INCONTINENCE [None]
